FAERS Safety Report 10099112 (Version 1)
Quarter: 2014Q2

REPORT INFORMATION
  Report Type: Spontaneous
  Country: US (occurrence: None)
  Receive Date: 20140422
  Receipt Date: 20140422
  Transmission Date: 20141212
  Serious: Yes (Life-Threatening, Disabling, Other)
  Sender: FDA-Public Use
  Company Number: None

PATIENT
  Age: 58 Year
  Sex: Female
  Weight: 79.38 kg

DRUGS (1)
  1. LYRICA [Suspect]
     Indication: FIBROMYALGIA
     Dosage: 50 MG., TWICE DAILY

REACTIONS (19)
  - Cataract [None]
  - Eye haemorrhage [None]
  - Depression [None]
  - Memory impairment [None]
  - Vision blurred [None]
  - Gastritis erosive [None]
  - Oesophageal rupture [None]
  - Hiatus hernia [None]
  - Disturbance in attention [None]
  - Mental impairment [None]
  - Dysphemia [None]
  - Gingival pain [None]
  - Artificial crown procedure [None]
  - Tooth fracture [None]
  - Constipation [None]
  - Weight increased [None]
  - Hepatic steatosis [None]
  - Pancreatic steatosis [None]
  - Nausea [None]
